FAERS Safety Report 4602821-9 (Version None)
Quarter: 2005Q1

REPORT INFORMATION
  Report Type: 
  Country: None (occurrence: None)
  Receive Date: 20050307
  Receipt Date: 20050223
  Transmission Date: 20050727
  Serious: Yes (Death)
  Sender: FDA-Public Use
  Company Number: 2005033358

PATIENT
  Age: 30 Year
  Sex: Male

DRUGS (2)
  1. LINEZOLID SOLUTION, STERILE (LINEZOLID) [Suspect]
     Indication: BACTERIAL INFECTION
     Dosage: 1200 MG (600 MG, TWICE DAILY), INTRAVENOUS
     Route: 042
     Dates: start: 20050216, end: 20050216
  2. CEFTAZIDIME SODIUM [Concomitant]

REACTIONS (1)
  - CEREBRAL ISCHAEMIA [None]
